FAERS Safety Report 7009920-5 (Version None)
Quarter: 2010Q3

REPORT INFORMATION
  Report Type: 
  Country: None (occurrence: None)
  Receive Date: 20100921
  Receipt Date: 20100413
  Transmission Date: 20110219
  Serious: Yes (Disabling)
  Sender: FDA-Public Use
  Company Number: APP201000545

PATIENT
  Age: 16 Year
  Sex: Female
  Weight: 83.4619 kg

DRUGS (7)
  1. SENSORCAINE [Suspect]
     Indication: MUSCULOSKELETAL PAIN
     Dosage: X4 DOSES CONTINUOUSLY VIA PUMP, INTRA-ARTICULAR
     Route: 014
     Dates: start: 20000510
  2. PAIN PUMP [Suspect]
     Indication: MUSCULOSKELETAL PAIN
     Dates: start: 20000510
  3. DIPRIVAN [Concomitant]
  4. ZINACEF [Concomitant]
  5. NAROPIN [Concomitant]
  6. ORATEC THERMAL UNIT [Concomitant]
  7. LACTATED RINGERS (FLEBOBAG RING LACT) [Concomitant]

REACTIONS (2)
  - JOINT INJURY [None]
  - MUSCULOSKELETAL PAIN [None]
